FAERS Safety Report 9226392 (Version 2)
Quarter: 2013Q2

REPORT INFORMATION
  Report Type: Spontaneous
  Country: US (occurrence: US)
  Receive Date: 20130411
  Receipt Date: 20130503
  Transmission Date: 20140414
  Serious: Yes (Hospitalization)
  Sender: FDA-Public Use
  Company Number: US-GILEAD-2013-0073204

PATIENT
  Age: 49 Year
  Sex: Male

DRUGS (1)
  1. LETAIRIS [Suspect]
     Indication: PULMONARY HYPERTENSION
     Dosage: 10 MG, UNK
     Route: 048
     Dates: start: 20120121

REACTIONS (4)
  - Cardiac failure congestive [Unknown]
  - Abdominal distension [Unknown]
  - Local swelling [Unknown]
  - Dyspnoea [Unknown]
